FAERS Safety Report 21328116 (Version 1)
Quarter: 2022Q3

REPORT INFORMATION
  Report Type: Spontaneous
  Country: US (occurrence: None)
  Receive Date: 20220912
  Receipt Date: 20220912
  Transmission Date: 20221027
  Serious: Yes (Disabling)
  Sender: FDA-Public Use
  Company Number: None

PATIENT
  Age: 71 Year
  Sex: Female
  Weight: 63 kg

DRUGS (21)
  1. RISEDRONATE SODIUM [Suspect]
     Active Substance: RISEDRONATE SODIUM
     Indication: Bone disorder
     Dosage: OTHER QUANTITY : 1 TABLET(S);?OTHER FREQUENCY : ONCE A MONTH;?
     Route: 048
     Dates: start: 20220403
  2. GABAPENTIN [Concomitant]
     Active Substance: GABAPENTIN
  3. CELECOXIB [Concomitant]
     Active Substance: CELECOXIB
  4. ALBUTEROL SULFATE [Concomitant]
     Active Substance: ALBUTEROL SULFATE
  5. Symbicort AER [Concomitant]
  6. DICLOFENAC [Concomitant]
     Active Substance: DICLOFENAC
  7. LOSARTAN [Concomitant]
     Active Substance: LOSARTAN
  8. AMITRIPTYLINE [Concomitant]
     Active Substance: AMITRIPTYLINE
  9. NITROFURANTOIN [Concomitant]
     Active Substance: NITROFURANTOIN
  10. VITAMIN B [Concomitant]
     Active Substance: VITAMIN B
  11. VITAMIN C [Concomitant]
     Active Substance: ASCORBIC ACID
  12. VITAMIN D [Concomitant]
     Active Substance: VITAMIN D NOS
  13. VITAMIN E [Concomitant]
     Active Substance: .ALPHA.-TOCOPHEROL
  14. MAGNESIUM [Concomitant]
     Active Substance: MAGNESIUM
  15. LYSINE [Concomitant]
     Active Substance: LYSINE
  16. Glucosamine/chondroitin [Concomitant]
  17. CALCIUM [Concomitant]
     Active Substance: CALCIUM
  18. KRILL OIL [Concomitant]
     Active Substance: DIETARY SUPPLEMENT\KRILL OIL
  19. COENZYME Q10 [Concomitant]
     Active Substance: DIETARY SUPPLEMENT\UBIDECARENONE
  20. SELENIUM [Concomitant]
     Active Substance: SELENIUM
  21. HERBALS\TURMERIC [Concomitant]
     Active Substance: HERBALS\TURMERIC

REACTIONS (10)
  - Arthralgia [None]
  - Neck pain [None]
  - Musculoskeletal chest pain [None]
  - Arthralgia [None]
  - Arthralgia [None]
  - Pain in extremity [None]
  - Joint swelling [None]
  - Peripheral swelling [None]
  - Joint swelling [None]
  - Erythema [None]

NARRATIVE: CASE EVENT DATE: 20220909
